FAERS Safety Report 25139567 (Version 1)
Quarter: 2025Q1

REPORT INFORMATION
  Report Type: Spontaneous
  Country: GB (occurrence: GB)
  Receive Date: 20250331
  Receipt Date: 20250331
  Transmission Date: 20250408
  Serious: Yes (Other)
  Sender: AUROBINDO
  Company Number: GB-MHRA-MED-202503171139038940-VJTLY

PATIENT
  Age: 52 Year
  Sex: Male
  Weight: 101 kg

DRUGS (1)
  1. PREDNISOLONE [Suspect]
     Active Substance: PREDNISOLONE
     Indication: Deafness
     Dosage: 60 MILLIGRAM, ONCE A DAY,EACH MORNING
     Route: 065
     Dates: start: 20250306

REACTIONS (1)
  - Macular oedema [Not Recovered/Not Resolved]

NARRATIVE: CASE EVENT DATE: 20250315
